FAERS Safety Report 18375136 (Version 1)
Quarter: 2020Q4

REPORT INFORMATION
  Report Type: Spontaneous
  Country: CN (occurrence: CN)
  Receive Date: 20201012
  Receipt Date: 20201012
  Transmission Date: 20210114
  Serious: Yes (Hospitalization)
  Sender: FDA-Public Use
  Company Number: CN-BAXTER-2020BAX020646

PATIENT
  Age: 30 Year
  Sex: Female
  Weight: 49 kg

DRUGS (4)
  1. HOLOXAN [Suspect]
     Active Substance: IFOSFAMIDE
     Indication: BONE CANCER
     Dosage: IFOSFAMIDE 2.5G + 0.9% SODIUM CHLORIDE 500ML
     Route: 041
     Dates: start: 20200909, end: 20200912
  2. 0.9% SODIUM CHLORIDE INJECTION [Suspect]
     Active Substance: SODIUM CHLORIDE
     Dosage: ETOPOSIDE100 MG + 0.9% SODIUM CHLORIDE  500 ML
     Route: 041
     Dates: start: 20200909, end: 20200912
  3. 0.9% SODIUM CHLORIDE INJECTION [Suspect]
     Active Substance: SODIUM CHLORIDE
     Indication: MEDICATION DILUTION
     Dosage: IFOSFAMIDE 2.5 G + 0.9% SODIUM CHLORIDE 500 ML
     Route: 041
     Dates: start: 20200909, end: 20200912
  4. ETOPOSIDE. [Suspect]
     Active Substance: ETOPOSIDE
     Indication: BONE CANCER
     Dosage: ETOPOSIDE100 MG + 0.9% SODIUM CHLORIDE  500 ML
     Route: 041
     Dates: start: 20200909, end: 20200912

REACTIONS (1)
  - Myelosuppression [Recovering/Resolving]

NARRATIVE: CASE EVENT DATE: 20200918
